FAERS Safety Report 8130514-2 (Version None)
Quarter: 2012Q1

REPORT INFORMATION
  Report Type: 
  Country: None (occurrence: None)
  Receive Date: 20120210
  Receipt Date: 20120201
  Transmission Date: 20120608
  Serious: Yes (Hospitalization)
  Sender: FDA-Public Use
  Company Number: BR-ASTRAZENECA-2012SE07651

PATIENT
  Age: 83 Year
  Sex: Female
  Weight: 56 kg

DRUGS (5)
  1. ATENOLOL [Suspect]
     Indication: HYPERTENSION
     Route: 048
  2. ATACAND HCT [Suspect]
     Indication: HYPERTENSION
     Dosage: 8+12.5 MG
     Route: 048
  3. MEMANTINE HYDROCHLORIDE [Concomitant]
     Indication: EFFUSION
     Route: 048
  4. LORAX [Concomitant]
     Indication: INSOMNIA
     Route: 048
  5. NATURETTI [Concomitant]
     Indication: CONSTIPATION
     Route: 048

REACTIONS (4)
  - HELICOBACTER INFECTION [None]
  - GASTRITIS [None]
  - INFARCTION [None]
  - HIATUS HERNIA [None]
